FAERS Safety Report 4610743-2 (Version None)
Quarter: 2005Q2

REPORT INFORMATION
  Report Type: 
  Country: None (occurrence: None)
  Receive Date: 20050222
  Receipt Date: 20040209
  Transmission Date: 20051028
  Serious: Yes (Disabling)
  Sender: FDA-Public Use
  Company Number: WAES 0402USA00762

PATIENT
  Age: 33 Year
  Sex: Male

DRUGS (3)
  1. PROPECIA [Suspect]
     Indication: MALE PATTERN BALDNESS
     Dosage: 1 MG/DAILY/PO
     Route: 048
     Dates: start: 20031101
  2. CLARINEX [Concomitant]
  3. NEXIUM [Concomitant]

REACTIONS (1)
  - EJACULATION DISORDER [None]
